FAERS Safety Report 26031997 (Version 1)
Quarter: 2025Q4

REPORT INFORMATION
  Report Type: Spontaneous
  Country: EU (occurrence: EU)
  Receive Date: 20251112
  Receipt Date: 20251112
  Transmission Date: 20260118
  Serious: Yes (Hospitalization, Other)
  Sender: AUROBINDO
  Company Number: EU-AFSSAPS-PC2025000859

PATIENT
  Age: 63 Year
  Sex: Male

DRUGS (3)
  1. ALPRAZOLAM [Suspect]
     Active Substance: ALPRAZOLAM
     Indication: Prophylaxis against alcoholic withdrawal syndrome
     Dosage: 1.5 MILLIGRAM
     Route: 048
     Dates: start: 202510
  2. DULOXETINE [Suspect]
     Active Substance: DULOXETINE
     Indication: Prophylaxis against alcoholic withdrawal syndrome
     Dosage: 120 MILLIGRAM
     Route: 048
     Dates: start: 2024
  3. DISULFIRAM [Suspect]
     Active Substance: DISULFIRAM
     Indication: Prophylaxis against alcoholic withdrawal syndrome
     Dosage: 500 MILLIGRAM
     Route: 048
     Dates: start: 2024

REACTIONS (1)
  - Syncope [Not Recovered/Not Resolved]
